FAERS Safety Report 4280605-1 (Version None)
Quarter: 2004Q1

REPORT INFORMATION
  Report Type: 
  Country: None (occurrence: None)
  Receive Date: 20040127
  Receipt Date: 20040114
  Transmission Date: 20041129
  Serious: Yes (Other)
  Sender: FDA-Public Use
  Company Number: 2003127211

PATIENT
  Sex: Female

DRUGS (2)
  1. ZYRTEC-D 12 HOUR [Suspect]
     Indication: ILL-DEFINED DISORDER
     Dosage: ORAL
     Route: 048
     Dates: start: 20031201
  2. SUDAFED 12 HOUR [Suspect]
     Indication: ILL-DEFINED DISORDER
     Dates: start: 20031201

REACTIONS (3)
  - FEELING ABNORMAL [None]
  - LUNG DISORDER [None]
  - NERVOUSNESS [None]
